FAERS Safety Report 19975564 (Version 1)
Quarter: 2021Q4

REPORT INFORMATION
  Report Type: Spontaneous
  Country: US (occurrence: US)
  Receive Date: 20211020
  Receipt Date: 20211020
  Transmission Date: 20220303
  Serious: No
  Sender: FDA-Public Use
  Company Number: US-PFIZER INC-202101252984

PATIENT
  Age: 71 Year
  Sex: Female
  Weight: 81.65 kg

DRUGS (1)
  1. TOVIAZ [Suspect]
     Active Substance: FESOTERODINE FUMARATE
     Indication: Urinary incontinence
     Dosage: 8 MG, 1X/DAY
     Route: 048
     Dates: start: 20210915, end: 20210920

REACTIONS (1)
  - Papule [Not Recovered/Not Resolved]

NARRATIVE: CASE EVENT DATE: 20210918
